FAERS Safety Report 5905676-5 (Version None)
Quarter: 2008Q4

REPORT INFORMATION
  Report Type: 
  Country: None (occurrence: None)
  Receive Date: 20081001
  Receipt Date: 20081001
  Transmission Date: 20090506
  Serious: Yes (Hospitalization)
  Sender: FDA-Public Use
  Company Number: None

PATIENT
  Age: 61 Year
  Sex: Male

DRUGS (2)
  1. MAGNESIUM OXIDE [Suspect]
     Indication: BLOOD MAGNESIUM DECREASED
     Dosage: 880 MG QID PO
     Route: 048
     Dates: start: 20080523
  2. PYRIDOXINE HCL [Suspect]

REACTIONS (3)
  - DEHYDRATION [None]
  - DIARRHOEA [None]
  - LIVER TRANSPLANT REJECTION [None]
